FAERS Safety Report 4768267-8 (Version None)
Quarter: 2005Q3

REPORT INFORMATION
  Report Type: 
  Country: None (occurrence: None)
  Receive Date: 20050909
  Receipt Date: 20050909
  Transmission Date: 20060218
  Serious: Yes (Hospitalization, Other)
  Sender: FDA-Public Use
  Company Number: None

PATIENT
  Sex: Female
  Weight: 56 kg

DRUGS (2)
  1. CYCLOPHOSPHAMIDE [Suspect]
     Indication: BREAST CANCER
     Dosage: SEE IMAGE
     Dates: start: 20050718
  2. DOXORUBICIN [Suspect]
     Dosage: SEE IMAGE
     Dates: start: 20050718

REACTIONS (3)
  - LUNG INFILTRATION [None]
  - PNEUMONIA [None]
  - PNEUMONITIS [None]
